FAERS Safety Report 10018929 (Version 8)
Quarter: 2016Q1

REPORT INFORMATION
  Report Type: Spontaneous
  Country: US (occurrence: US)
  Receive Date: 20140318
  Receipt Date: 20160307
  Transmission Date: 20160525
  Serious: Yes (Hospitalization, Other)
  Sender: FDA-Public Use
  Company Number: US-GLAXOSMITHKLINE-A1064325A

PATIENT
  Age: 50 Year
  Sex: Female
  Weight: 74.1 kg

DRUGS (19)
  1. HYDROCODONE [Concomitant]
     Active Substance: HYDROCODONE
  2. NORCO [Concomitant]
     Active Substance: ACETAMINOPHEN\HYDROCODONE BITARTRATE
  3. ELAVIL (AMITRIPTYLINE CHLORHYDRATE) [Concomitant]
  4. POTIGA [Suspect]
     Active Substance: EZOGABINE
     Indication: SEIZURE
     Dosage: 800 MG, Z
     Route: 048
     Dates: start: 201207
  5. POTIGA [Suspect]
     Active Substance: EZOGABINE
     Dosage: 300 MG, TID
     Route: 048
  6. LOVENOX [Concomitant]
     Active Substance: ENOXAPARIN SODIUM
  7. ATENOLOL. [Concomitant]
     Active Substance: ATENOLOL
  8. PLAVIX [Concomitant]
     Active Substance: CLOPIDOGREL BISULFATE
  9. KEPPRA [Concomitant]
     Active Substance: LEVETIRACETAM
  10. LORAZEPAM. [Concomitant]
     Active Substance: LORAZEPAM
  11. POTIGA [Suspect]
     Active Substance: EZOGABINE
     Indication: PARTIAL SEIZURES
     Dosage: 300 MG, BID
     Route: 048
     Dates: start: 2012, end: 201411
  12. XENICAL [Concomitant]
     Active Substance: ORLISTAT
  13. AMITRIPTYLINE [Concomitant]
     Active Substance: AMITRIPTYLINE
  14. LASIX [Concomitant]
     Active Substance: FUROSEMIDE
  15. TENORMIN [Concomitant]
     Active Substance: ATENOLOL
  16. TOPAMAX [Concomitant]
     Active Substance: TOPIRAMATE
  17. SYNTHROID [Concomitant]
     Active Substance: LEVOTHYROXINE SODIUM
  18. TIZADINE [Concomitant]
     Active Substance: TIZANIDINE HYDROCHLORIDE
  19. FOLIC ACID. [Concomitant]
     Active Substance: FOLIC ACID

REACTIONS (32)
  - Eye colour change [Recovering/Resolving]
  - Memory impairment [Not Recovered/Not Resolved]
  - Crying [Unknown]
  - Pain [Unknown]
  - Emotional distress [Unknown]
  - Pituitary tumour [Unknown]
  - Arthritis [Unknown]
  - Adverse event [Not Recovered/Not Resolved]
  - Retinal disorder [Unknown]
  - Asthenopia [Not Recovered/Not Resolved]
  - Scleral discolouration [Unknown]
  - Migraine-triggered seizure [Not Recovered/Not Resolved]
  - Spinal fusion surgery [Unknown]
  - Retinal pigmentation [Not Recovered/Not Resolved]
  - Eye disorder [Not Recovered/Not Resolved]
  - Road traffic accident [Unknown]
  - Visual acuity reduced [Not Recovered/Not Resolved]
  - Activities of daily living impaired [Not Recovered/Not Resolved]
  - Diplopia [Unknown]
  - Hospitalisation [Unknown]
  - Emergency care [Recovered/Resolved]
  - Visual field defect [Not Recovered/Not Resolved]
  - Fear [Unknown]
  - Headache [Not Recovered/Not Resolved]
  - Fall [Unknown]
  - Blindness [Not Recovered/Not Resolved]
  - Optic neuropathy [Unknown]
  - Pituitary tumour benign [Unknown]
  - Depression [Not Recovered/Not Resolved]
  - Eye injury [Not Recovered/Not Resolved]
  - Visual impairment [Not Recovered/Not Resolved]
  - Neck surgery [Unknown]

NARRATIVE: CASE EVENT DATE: 20121203
